FAERS Safety Report 8595676-1 (Version None)
Quarter: 2012Q3

REPORT INFORMATION
  Report Type: 
  Country: None (occurrence: None)
  Receive Date: 20120815
  Receipt Date: 20120712
  Transmission Date: 20120928
  Serious: Yes (Other)
  Sender: FDA-Public Use
  Company Number: JP-MSD-1207JPN000542

PATIENT

DRUGS (13)
  1. PEGINTERFERON ALFA-2B [Suspect]
     Indication: HEPATITIS C
     Dosage: UNK UNK, QW
     Route: 058
     Dates: start: 20120120, end: 20120511
  2. PEGINTERFERON ALFA-2B [Suspect]
     Dosage: UNK, QW
     Route: 058
     Dates: start: 20120325, end: 20120628
  3. CEFMETAZON [Concomitant]
     Dosage: UNK
     Dates: start: 20120112
  4. VANIPREVIR [Suspect]
     Dosage: UNK
     Route: 048
     Dates: start: 20120305, end: 20120412
  5. REBETOL [Suspect]
     Dosage: UNK, QD
     Route: 048
     Dates: start: 20120430, end: 20120517
  6. VANIPREVIR [Suspect]
     Dosage: UNK
     Route: 048
     Dates: start: 20120419, end: 20120428
  7. VANIPREVIR [Suspect]
     Dosage: UNK
     Dates: start: 20120430, end: 20120517
  8. VANIPREVIR [Suspect]
     Indication: HEPATITIS C
     Dosage: 300 MG, BID
     Route: 048
     Dates: start: 20120120, end: 20120303
  9. REBETOL [Suspect]
     Dosage: UNK, QD
     Route: 048
     Dates: start: 20120419, end: 20120428
  10. REBETOL [Suspect]
     Dosage: UNK, QD
     Route: 048
     Dates: start: 20120531, end: 20120630
  11. REBETOL [Suspect]
     Dosage: UNK, QD
     Route: 048
     Dates: start: 20120305, end: 20120412
  12. VANIPREVIR [Suspect]
     Dosage: UNK
     Route: 048
     Dates: start: 20120601, end: 20120630
  13. REBETOL [Suspect]
     Indication: HEPATITIS C
     Dosage: UNK, QD
     Route: 048
     Dates: start: 20120120, end: 20120303

REACTIONS (2)
  - DEHYDRATION [None]
  - ATRIAL FIBRILLATION [None]
